FAERS Safety Report 12261664 (Version 5)
Quarter: 2017Q3

REPORT INFORMATION
  Report Type: Report from Study
  Country: FR (occurrence: FR)
  Receive Date: 20160413
  Receipt Date: 20170926
  Transmission Date: 20171127
  Serious: Yes (Other)
  Sender: FDA-Public Use
  Company Number: FR-ROCHE-1739520

PATIENT
  Age: 65 Year
  Sex: Female

DRUGS (24)
  1. RANIBIZUMAB. [Suspect]
     Active Substance: RANIBIZUMAB
     Dosage: REGIMEN 11
     Route: 050
     Dates: start: 20150825
  2. RANIBIZUMAB. [Suspect]
     Active Substance: RANIBIZUMAB
     Dosage: 0.5 MG, LEFT EYE
     Route: 031
     Dates: start: 20160503
  3. RANIBIZUMAB. [Suspect]
     Active Substance: RANIBIZUMAB
     Dosage: REGIMEN 5
     Route: 050
     Dates: start: 20141230
  4. RANIBIZUMAB. [Suspect]
     Active Substance: RANIBIZUMAB
     Dosage: REGIMEN 7
     Route: 050
     Dates: start: 20150331, end: 20150331
  5. RANIBIZUMAB. [Suspect]
     Active Substance: RANIBIZUMAB
     Dosage: REGIMEN 10?LEFT EYE
     Route: 050
     Dates: start: 20150728
  6. RANIBIZUMAB. [Suspect]
     Active Substance: RANIBIZUMAB
     Dosage: REGIMEN 14
     Route: 050
     Dates: start: 20151222
  7. RANIBIZUMAB. [Suspect]
     Active Substance: RANIBIZUMAB
     Dosage: 0.5 MG, LEFT EYE
     Route: 031
     Dates: start: 20160802
  8. LEVOTHYROX [Suspect]
     Active Substance: LEVOTHYROXINE
     Indication: THYROID DISORDER
     Route: 065
     Dates: start: 201608
  9. RANIBIZUMAB. [Suspect]
     Active Substance: RANIBIZUMAB
     Dosage: REGIMEN 6
     Route: 050
     Dates: start: 20150127
  10. RANIBIZUMAB. [Suspect]
     Active Substance: RANIBIZUMAB
     Dosage: REGIMEN 15
     Route: 050
     Dates: start: 20160119, end: 20160119
  11. RANIBIZUMAB. [Suspect]
     Active Substance: RANIBIZUMAB
     Dosage: REGIMEN 9
     Route: 050
     Dates: start: 20150526
  12. RANIBIZUMAB. [Suspect]
     Active Substance: RANIBIZUMAB
     Dosage: REGIMEN 3
     Route: 050
     Dates: start: 20141104
  13. RANIBIZUMAB. [Suspect]
     Active Substance: RANIBIZUMAB
     Dosage: REGIMEN 16
     Route: 050
     Dates: start: 20160216
  14. RANIBIZUMAB. [Suspect]
     Active Substance: RANIBIZUMAB
     Dosage: 0.5 MG, LEFT EYE
     Route: 031
     Dates: start: 20160927
  15. RANIBIZUMAB. [Suspect]
     Active Substance: RANIBIZUMAB
     Indication: DIABETIC RETINAL OEDEMA
     Dosage: REGIMEN 1
     Route: 050
     Dates: start: 20140909
  16. RANIBIZUMAB. [Suspect]
     Active Substance: RANIBIZUMAB
     Dosage: REGIMEN 2
     Route: 050
     Dates: start: 20141007
  17. RANIBIZUMAB. [Suspect]
     Active Substance: RANIBIZUMAB
     Dosage: REGIMEN 4
     Route: 050
     Dates: start: 20141202
  18. RANIBIZUMAB. [Suspect]
     Active Substance: RANIBIZUMAB
     Dosage: REGIMEN 8
     Route: 050
     Dates: start: 20150428
  19. RANIBIZUMAB. [Suspect]
     Active Substance: RANIBIZUMAB
     Dosage: REGIMEN 12
     Route: 050
     Dates: start: 20150922
  20. RANIBIZUMAB. [Suspect]
     Active Substance: RANIBIZUMAB
     Dosage: REGIMEN 13
     Route: 050
     Dates: start: 20151020
  21. RANIBIZUMAB. [Suspect]
     Active Substance: RANIBIZUMAB
     Dosage: 0.5 MG, LEFT EYE
     Route: 031
     Dates: start: 20160531
  22. RANIBIZUMAB. [Suspect]
     Active Substance: RANIBIZUMAB
     Dosage: 0.5 MG, LEFT EYE
     Route: 031
     Dates: start: 20160712
  23. RANIBIZUMAB. [Suspect]
     Active Substance: RANIBIZUMAB
     Dosage: 0.5 MG, LEFT EYE
     Route: 031
     Dates: start: 20160830
  24. RANIBIZUMAB. [Suspect]
     Active Substance: RANIBIZUMAB
     Dosage: RIGHT EYE
     Route: 031
     Dates: start: 20170221

REACTIONS (12)
  - Headache [Not Recovered/Not Resolved]
  - Tremor [Not Recovered/Not Resolved]
  - Amnesia [Not Recovered/Not Resolved]
  - Amaurosis [Recovered/Resolved]
  - Eye pain [Recovering/Resolving]
  - Inappropriate schedule of drug administration [Unknown]
  - Vitreous floaters [Recovered/Resolved]
  - Sleep apnoea syndrome [Unknown]
  - Visual impairment [Recovered/Resolved]
  - Thyroid disorder [Unknown]
  - Ocular discomfort [Recovered/Resolved]
  - Nasopharyngitis [Unknown]

NARRATIVE: CASE EVENT DATE: 201503
